FAERS Safety Report 15232384 (Version 1)
Quarter: 2018Q3

REPORT INFORMATION
  Report Type: Spontaneous
  Country: US (occurrence: US)
  Receive Date: 20180709
  Receipt Date: 20180709
  Transmission Date: 20181010
  Serious: Yes (Life-Threatening, Hospitalization, Other)
  Sender: FDA-Public Use
  Company Number: None

PATIENT
  Age: 42 Year
  Sex: Female
  Weight: 99.9 kg

DRUGS (7)
  1. VITAMIN D [Concomitant]
     Active Substance: CHOLECALCIFEROL
  2. SUBLINGUAL ALLERGY DROPS (SLIT) [Concomitant]
  3. ALKA?SELTZER PLUS SEVERE SINUS COLD AND COUGH LIQUID GELS [Suspect]
     Active Substance: ACETAMINOPHEN\DEXTROMETHORPHAN HYDROBROMIDE\GUAIFENESIN\PHENYLEPHRINE HYDROCHLORIDE
     Indication: PULMONARY CONGESTION
     Dosage: ?          QUANTITY:1 CAPSULE(S);?
     Route: 048
     Dates: start: 20180605, end: 20180605
  4. IRON PILLS [Concomitant]
     Active Substance: IRON
  5. FAMOTIDINE. [Concomitant]
     Active Substance: FAMOTIDINE
  6. ALKA?SELTZER PLUS SEVERE SINUS COLD AND COUGH LIQUID GELS [Suspect]
     Active Substance: ACETAMINOPHEN\DEXTROMETHORPHAN HYDROBROMIDE\GUAIFENESIN\PHENYLEPHRINE HYDROCHLORIDE
     Indication: NASOPHARYNGITIS
     Dosage: ?          QUANTITY:1 CAPSULE(S);?
     Route: 048
     Dates: start: 20180605, end: 20180605
  7. DAILY MULTI?VITAMIN [Concomitant]
     Active Substance: VITAMINS

REACTIONS (9)
  - Oesophageal perforation [None]
  - Chest pain [None]
  - Product physical issue [None]
  - Product size issue [None]
  - Retching [None]
  - Dyspnoea [None]
  - Loss of consciousness [None]
  - Pleural effusion [None]
  - Pneumothorax [None]

NARRATIVE: CASE EVENT DATE: 20180605
